FAERS Safety Report 6689335-X (Version None)
Quarter: 2010Q2

REPORT INFORMATION
  Report Type: 
  Country: None (occurrence: None)
  Receive Date: 20100416
  Receipt Date: 20100412
  Transmission Date: 20101027
  Serious: Yes (Life-Threatening)
  Sender: FDA-Public Use
  Company Number: SPV1-2010-00335

PATIENT
  Age: 71 Year
  Sex: Male

DRUGS (12)
  1. FOSRENOL [Suspect]
     Indication: HYPERPHOSPHATAEMIA
     Dosage: 750 MG, ORAL
     Route: 048
     Dates: start: 20090420
  2. CANDESARTAN CILEXETIL [Concomitant]
  3. TAPIZOL (LANSOPRAZOLE) [Concomitant]
  4. ARICEPT /1318901/ (DONEPEZIL HYDROCHLORIDE) [Concomitant]
  5. DORNER (BERAPROST SODIUM) [Concomitant]
  6. ANPLAG (SARPOGRELATE HYDROCHLORIDE) [Concomitant]
  7. DEPAS (ETIZOLAM) [Concomitant]
  8. HALCION [Concomitant]
  9. YOKUKAN-SAN (HERBAL EXTRACT NOS) [Concomitant]
  10. SHAKUYAKUKANZOUTOU (HERBAL EXTRACT NOS) [Concomitant]
  11. EPOGEN [Concomitant]
  12. RENAGEL /01449901/ (SEVELAMER) [Concomitant]

REACTIONS (2)
  - ANGINA PECTORIS [None]
  - SHUNT MALFUNCTION [None]
